FAERS Safety Report 13303197 (Version 1)
Quarter: 2017Q1

REPORT INFORMATION
  Report Type: Spontaneous
  Country: US (occurrence: US)
  Receive Date: 20170307
  Receipt Date: 20170307
  Transmission Date: 20170428
  Serious: No
  Sender: FDA-Public Use
  Company Number: US-MYLANLABS-2016M1047492

PATIENT
  Age: 67 Year
  Sex: Female

DRUGS (1)
  1. OLUX-E [Suspect]
     Active Substance: CLOBETASOL PROPIONATE
     Indication: DRY SKIN
     Dosage: UNK, 50 GM
     Route: 061

REACTIONS (2)
  - No adverse event [Recovered/Resolved]
  - Product physical consistency issue [Recovered/Resolved]
